FAERS Safety Report 17598453 (Version 1)
Quarter: 2020Q1

REPORT INFORMATION
  Report Type: Spontaneous
  Country: US (occurrence: US)
  Receive Date: 20200330
  Receipt Date: 20200330
  Transmission Date: 20200409
  Serious: Yes (Other)
  Sender: FDA-Public Use
  Company Number: US-AVEDRO-AVE-2020-0100-AE

PATIENT
  Age: 63 Year
  Sex: Female

DRUGS (1)
  1. AVEDRO CROSS-LINKING PRODUCT(S), UNSPECIFIED [Suspect]
     Active Substance: RIBOFLAVIN 5^-PHOSPHATE SODIUM
     Indication: KERATOCONUS
     Route: 047
     Dates: start: 20200303, end: 20200303

REACTIONS (2)
  - Corneal erosion [Unknown]
  - Persistent corneal epithelial defect [Unknown]

NARRATIVE: CASE EVENT DATE: 202003
